APPROVED DRUG PRODUCT: DOXYCYCLINE HYCLATE
Active Ingredient: DOXYCYCLINE HYCLATE
Strength: EQ 50MG BASE
Dosage Form/Route: CAPSULE;ORAL
Application: A062119 | Product #002
Applicant: HALSEY DRUG CO INC
Approved: May 24, 1985 | RLD: No | RS: No | Type: DISCN